FAERS Safety Report 23427040 (Version 1)
Quarter: 2024Q1

REPORT INFORMATION
  Report Type: Report from Study
  Country: IT (occurrence: IT)
  Receive Date: 20240122
  Receipt Date: 20240122
  Transmission Date: 20240410
  Serious: Yes (Other)
  Sender: FDA-Public Use
  Company Number: None

PATIENT
  Age: 63 Year
  Sex: Male

DRUGS (7)
  1. CAPECITABINE [Suspect]
     Active Substance: CAPECITABINE
     Indication: Pancreatic neoplasm
     Dosage: 2000MG THEN DISCONTINUED ON 28/8/23 AND RESUMED AT A REDUCED DOSE TO 1,400MG ON 11/09/23
     Dates: start: 20230710, end: 20230924
  2. GEMCITABINE HYDROCHLORIDE [Suspect]
     Active Substance: GEMCITABINE HYDROCHLORIDE
     Indication: Pancreatic neoplasm
     Dosage: 1400MG
     Dates: start: 20230710, end: 20230924
  3. PERINDOPRIL [Concomitant]
     Active Substance: PERINDOPRIL
  4. HUMALOG [Concomitant]
     Active Substance: INSULIN LISPRO
  5. BISOPROLOL [Concomitant]
     Active Substance: BISOPROLOL\BISOPROLOL FUMARATE
  6. PANCRELIPASE [Concomitant]
     Active Substance: PANCRELIPASE
  7. FENOFIBRATE [Concomitant]
     Active Substance: FENOFIBRATE

REACTIONS (4)
  - Pain in extremity [Recovered/Resolved]
  - Neutropenia [Recovered/Resolved]
  - Burning feet syndrome [Recovered/Resolved]
  - Palmar-plantar erythrodysaesthesia syndrome [Recovered/Resolved]

NARRATIVE: CASE EVENT DATE: 20230717
